FAERS Safety Report 10555580 (Version 1)
Quarter: 2014Q4

REPORT INFORMATION
  Report Type: Spontaneous
  Country: US (occurrence: US)
  Receive Date: 20141030
  Receipt Date: 20141030
  Transmission Date: 20150529
  Serious: No
  Sender: FDA-Public Use
  Company Number: US-009507513-1410USA015857

PATIENT
  Age: 25 Year
  Sex: Female
  Weight: 50.79 kg

DRUGS (2)
  1. NEXPLANON [Suspect]
     Active Substance: ETONOGESTREL
     Indication: MENSTRUAL CYCLE MANAGEMENT
  2. NEXPLANON [Suspect]
     Active Substance: ETONOGESTREL
     Indication: CONTRACEPTION
     Dosage: 1 ROD EVERY 3 YEARS
     Route: 059
     Dates: start: 201402

REACTIONS (3)
  - Metrorrhagia [Unknown]
  - Product use issue [Unknown]
  - Platelet count decreased [Unknown]

NARRATIVE: CASE EVENT DATE: 201402
